FAERS Safety Report 25068500 (Version 1)
Quarter: 2025Q1

REPORT INFORMATION
  Report Type: Spontaneous
  Country: US (occurrence: US)
  Receive Date: 20250312
  Receipt Date: 20250312
  Transmission Date: 20250408
  Serious: No
  Sender: SANOFI AVENTIS
  Company Number: US-SANOFI-02438648

PATIENT
  Age: 75 Year
  Sex: Female

DRUGS (3)
  1. LANTUS [Suspect]
     Active Substance: INSULIN GLARGINE
     Indication: Type 1 diabetes mellitus
     Dosage: 7 TO 8 UNITS, TID
     Route: 065
     Dates: start: 1990
  2. NOVOLIN R [Concomitant]
     Active Substance: INSULIN HUMAN
  3. INSULIN NOS [Concomitant]
     Active Substance: INSULIN NOS

REACTIONS (2)
  - Blood glucose fluctuation [Unknown]
  - Off label use [Unknown]
